FAERS Safety Report 15386632 (Version 1)
Quarter: 2018Q3

REPORT INFORMATION
  Report Type: Spontaneous
  Country: US (occurrence: US)
  Receive Date: 20180914
  Receipt Date: 20180914
  Transmission Date: 20181010
  Serious: Yes (Hospitalization, Other)
  Sender: FDA-Public Use
  Company Number: US-ASTRAZENECA-2018SF15300

PATIENT
  Age: 50 Year
  Sex: Female

DRUGS (1)
  1. ZOMIG [Suspect]
     Active Substance: ZOLMITRIPTAN
     Indication: MIGRAINE
     Dosage: 5 MG, 1 SPRAY IN NOSTRIL AT ONSET OF MIGRAINE, MAY REPEAT IN 2 HOURS
     Route: 045
     Dates: start: 201711

REACTIONS (2)
  - Drug effect incomplete [Unknown]
  - Migraine [Unknown]
